FAERS Safety Report 19836171 (Version 1)
Quarter: 2021Q3

REPORT INFORMATION
  Report Type: Spontaneous
  Country: US (occurrence: US)
  Receive Date: 20210915
  Receipt Date: 20210915
  Transmission Date: 20211014
  Serious: No
  Sender: FDA-Public Use
  Company Number: US-BIOHAVEN PHARMACEUTICALS-2021BHV01063

PATIENT
  Age: 67 Year
  Sex: Female
  Weight: 52.61 kg

DRUGS (8)
  1. NEURONTIN [Concomitant]
     Active Substance: GABAPENTIN
  2. UNSPECIFIED VITAMINS [Concomitant]
     Active Substance: VITAMINS
  3. PROTONIX [Concomitant]
     Active Substance: PANTOPRAZOLE SODIUM
     Dosage: UNK, EVERY 48 HOURS
  4. EMGALITY [Suspect]
     Active Substance: GALCANEZUMAB-GNLM
     Indication: MIGRAINE PROPHYLAXIS
     Dosage: UNK, ONCE
     Dates: start: 202105, end: 202105
  5. CELEBREX [Concomitant]
     Active Substance: CELECOXIB
     Dosage: UNK, 1X/WEEK
  6. CELEBREX [Concomitant]
     Active Substance: CELECOXIB
     Dosage: UNK, 2X/WEEK
  7. NURTEC ODT [Suspect]
     Active Substance: RIMEGEPANT SULFATE
     Indication: MIGRAINE PROPHYLAXIS
     Dosage: 75 MG, AS NEEDED
     Route: 048
     Dates: start: 20210103, end: 202105
  8. NURTEC ODT [Suspect]
     Active Substance: RIMEGEPANT SULFATE
     Indication: MIGRAINE
     Dosage: 75 MG, EVERY 48 HOURS
     Route: 048
     Dates: start: 20210708, end: 20210722

REACTIONS (3)
  - Dysphonia [Recovered/Resolved]
  - Chest pain [Recovered/Resolved]
  - Drug hypersensitivity [Recovered/Resolved]

NARRATIVE: CASE EVENT DATE: 2021
